FAERS Safety Report 16560544 (Version 1)
Quarter: 2019Q3

REPORT INFORMATION
  Report Type: Spontaneous
  Country: JP (occurrence: JP)
  Receive Date: 20190711
  Receipt Date: 20190711
  Transmission Date: 20191004
  Serious: Yes (Other)
  Sender: FDA-Public Use
  Company Number: JP-ABBVIE-19P-087-2830909-00

PATIENT
  Age: 75 Year
  Sex: Female
  Weight: 58 kg

DRUGS (12)
  1. ESLAX [Suspect]
     Active Substance: ROCURONIUM BROMIDE
     Indication: INDUCTION OF ANAESTHESIA
     Dosage: 50MG/5.0ML
     Route: 042
     Dates: start: 20190613, end: 20190613
  2. SIGMART [Concomitant]
     Active Substance: NICORANDIL
     Indication: BLOOD PRESSURE DECREASED
  3. SEVOFRANE [Suspect]
     Active Substance: SEVOFLURANE
     Indication: GENERAL ANAESTHESIA
     Dosage: DAILY DOSE:- 1.0 - 1.5%
     Route: 055
     Dates: start: 20190613, end: 20190613
  4. ULTIVA [Concomitant]
     Active Substance: REMIFENTANIL HYDROCHLORIDE
     Indication: GENERAL ANAESTHESIA
     Dosage: DAILY DOSE:- 2 MG (DISSOLVED WITH 20 ML OF NORMAL SALINE)
     Route: 041
     Dates: start: 20190613, end: 20190613
  5. SOLU-MEDROL [Concomitant]
     Active Substance: METHYLPREDNISOLONE SODIUM SUCCINATE
     Indication: HYPERSENSITIVITY
     Route: 042
     Dates: start: 20190613, end: 20190613
  6. PROPOFOL. [Suspect]
     Active Substance: PROPOFOL
     Indication: INDUCTION OF ANAESTHESIA
     Route: 042
     Dates: start: 20190613, end: 20190613
  7. DOPAMINE [Concomitant]
     Active Substance: DOPAMINE HYDROCHLORIDE
     Indication: BLOOD PRESSURE MANAGEMENT
     Dosage: DAILY DOSE :-3 - 10 ML PER HOUR
     Route: 042
     Dates: start: 20190613, end: 20190613
  8. DORMICUM [Concomitant]
     Indication: SEDATION
     Route: 042
     Dates: start: 20190613, end: 20190613
  9. SIGMART [Concomitant]
     Active Substance: NICORANDIL
     Indication: MYOCARDIAL ISCHAEMIA
     Dosage: DAILY DOSE :-24 MG (DISSOLVED WITH 24 ML OF NORMAL SALINE)
     Route: 042
     Dates: start: 20190613, end: 20190613
  10. FENTANYL. [Concomitant]
     Active Substance: FENTANYL
     Indication: INDUCTION OF ANAESTHESIA
     Dosage: DAILY DOSE :- 2 ML (100 MCG), SINGLE
     Route: 042
     Dates: start: 20190613, end: 20190613
  11. EPHEDRINE. [Concomitant]
     Active Substance: EPHEDRINE
     Indication: BLOOD PRESSURE MANAGEMENT
     Route: 042
     Dates: start: 20190613, end: 20190613
  12. PERDIPINE [Concomitant]
     Active Substance: NICARDIPINE HYDROCHLORIDE
     Indication: BLOOD PRESSURE MANAGEMENT
     Route: 042
     Dates: start: 20190613, end: 20190613

REACTIONS (1)
  - Anaphylactic shock [Recovered/Resolved]

NARRATIVE: CASE EVENT DATE: 20190613
